FAERS Safety Report 7055627-8 (Version None)
Quarter: 2010Q4

REPORT INFORMATION
  Report Type: 
  Country: None (occurrence: None)
  Receive Date: 20101021
  Receipt Date: 20101013
  Transmission Date: 20110411
  Serious: Yes (Death)
  Sender: FDA-Public Use
  Company Number: JP-NOVOPROD-316538

PATIENT
  Sex: Female
  Weight: 40 kg

DRUGS (3)
  1. NOVOSEVEN [Suspect]
     Indication: MUSCLE HAEMORRHAGE
     Dosage: 3.6 MICROGRAM/KG/EPISODE 1-2 TIMES
     Route: 042
  2. NOVOSEVEN [Suspect]
     Indication: HAEMORRHAGE SUBCUTANEOUS
  3. PREDNISOLONE [Concomitant]
     Dosage: 20 MG, UNK
     Route: 048

REACTIONS (1)
  - ASTHENIA [None]
